FAERS Safety Report 4366599-9 (Version None)
Quarter: 2004Q2

REPORT INFORMATION
  Report Type: 
  Country: None (occurrence: None)
  Receive Date: 20040527
  Receipt Date: 20040521
  Transmission Date: 20050107
  Serious: Yes (Other)
  Sender: FDA-Public Use
  Company Number: GB-GLAXOSMITHKLINE-B0333484A

PATIENT

DRUGS (1)
  1. ZOFRAN [Suspect]
     Route: 065

REACTIONS (1)
  - COLITIS ISCHAEMIC [None]
